FAERS Safety Report 14385403 (Version 4)
Quarter: 2019Q1

REPORT INFORMATION
  Report Type: Spontaneous
  Country: US (occurrence: US)
  Receive Date: 20180115
  Receipt Date: 20190204
  Transmission Date: 20190417
  Serious: Yes (Other)
  Sender: FDA-Public Use
  Company Number: US-SA-2016SA232581

PATIENT
  Age: 57 Year
  Sex: Female
  Weight: 68.03 kg

DRUGS (15)
  1. CYANOCOBALAMIN. [Concomitant]
     Active Substance: CYANOCOBALAMIN
     Dosage: UNK UNK,UNK
     Route: 065
     Dates: start: 199107
  2. COENZYME Q10 [Concomitant]
     Active Substance: UBIDECARENONE
     Dosage: UNK UNK,UNK
     Route: 065
     Dates: start: 199107
  3. CYTOXAN [Concomitant]
     Active Substance: CYCLOPHOSPHAMIDE
     Route: 065
  4. GARCINIA GUMMI-GUTTA [Concomitant]
     Dosage: UNK UNK,UNK
     Route: 065
     Dates: start: 199107
  5. CURCUMIN [Concomitant]
     Active Substance: CURCUMIN
     Dosage: UNK UNK,UNK
     Route: 065
     Dates: start: 199107
  6. TAXOTERE [Suspect]
     Active Substance: DOCETAXEL
     Indication: BREAST CANCER FEMALE
     Dosage: 157 MG, Q3W
     Route: 042
     Dates: start: 20080314, end: 20080314
  7. TOCOPHEROL [Concomitant]
     Active Substance: TOCOPHEROL
     Dosage: UNK UNK,UNK
     Route: 065
     Dates: start: 200206, end: 201603
  8. FIBER [Concomitant]
     Active Substance: PSYLLIUM HUSK
     Dosage: UNK UNK,UNK
     Route: 065
     Dates: start: 199107
  9. NEOSAR [Concomitant]
     Active Substance: CYCLOPHOSPHAMIDE
     Dosage: UNK UNK, UNK
     Route: 065
  10. NIACIN. [Concomitant]
     Active Substance: NIACIN
     Dosage: UNK UNK,UNK
     Route: 065
     Dates: start: 199107
  11. ASHWAGANDHA [WITHANIA SOMNIFERA ROOT] [Concomitant]
     Dosage: UNK UNK,UNK
     Route: 065
     Dates: start: 199107
  12. IRON [Concomitant]
     Active Substance: IRON
     Dosage: UNK UNK,UNK
     Route: 065
     Dates: start: 200810
  13. TAXOTERE [Suspect]
     Active Substance: DOCETAXEL
     Dosage: 157 MG, Q3W
     Route: 042
     Dates: start: 20080627, end: 20080627
  14. VITAMIN D3 [Concomitant]
     Active Substance: CHOLECALCIFEROL
     Dosage: UNK UNK,UNK
     Route: 065
     Dates: start: 200206, end: 201603
  15. CALCIUM CARBONATE;MAGNESIUM OXIDE;ZINC GLUCONATE [Concomitant]
     Dosage: UNK UNK,UNK
     Route: 065
     Dates: start: 199107

REACTIONS (6)
  - Alopecia [Recovering/Resolving]
  - Pain [Unknown]
  - Impaired quality of life [Unknown]
  - Anxiety [Unknown]
  - Psychological trauma [Unknown]
  - Emotional distress [Unknown]

NARRATIVE: CASE EVENT DATE: 20081227
